FAERS Safety Report 9947569 (Version 1)
Quarter: 2014Q1

REPORT INFORMATION
  Report Type: Report from Study
  Country: US (occurrence: US)
  Receive Date: 20140303
  Receipt Date: 20140303
  Transmission Date: 20141002
  Serious: No
  Sender: FDA-Public Use
  Company Number: US-ABBVIE-13P-163-1062700-00

PATIENT
  Age: 51 Year
  Sex: Female

DRUGS (4)
  1. HUMIRA [Suspect]
     Indication: CROHN^S DISEASE
     Dates: start: 20121002, end: 201302
  2. HUMIRA [Suspect]
     Dates: start: 201302
  3. VITAMIN B-12 [Concomitant]
     Indication: NUTRITIONAL SUPPLEMENTATION
  4. POTASSIUM [Concomitant]
     Indication: MINERAL SUPPLEMENTATION

REACTIONS (3)
  - Circumstance or information capable of leading to medication error [Unknown]
  - Drug ineffective [Unknown]
  - Social problem [Unknown]
